FAERS Safety Report 23122695 (Version 2)
Quarter: 2023Q4

REPORT INFORMATION
  Report Type: Spontaneous
  Country: JP (occurrence: JP)
  Receive Date: 20231030
  Receipt Date: 20231107
  Transmission Date: 20240110
  Serious: Yes (Other)
  Sender: FDA-Public Use
  Company Number: JP-BEH-2023164609

PATIENT
  Age: 5 Decade
  Sex: Male
  Weight: 70 kg

DRUGS (4)
  1. PRIVIGEN [Suspect]
     Active Substance: HUMAN IMMUNOGLOBULIN G
     Indication: Chronic inflammatory demyelinating polyradiculoneuropathy
     Dosage: 300 MILLILITER, QD
     Route: 065
  2. PRIVIGEN [Suspect]
     Active Substance: HUMAN IMMUNOGLOBULIN G
     Indication: Chronic inflammatory demyelinating polyradiculoneuropathy
     Dosage: 300 MILLILITER, QD
     Route: 065
  3. PRIVIGEN [Suspect]
     Active Substance: HUMAN IMMUNOGLOBULIN G
     Dosage: 1000 MILLIGRAM / DAY
     Route: 065
  4. PRIVIGEN [Suspect]
     Active Substance: HUMAN IMMUNOGLOBULIN G
     Dosage: 300 MILLILITER, QD
     Route: 065

REACTIONS (5)
  - Chronic inflammatory demyelinating polyradiculoneuropathy [Unknown]
  - Muscular weakness [Unknown]
  - No adverse event [Unknown]
  - Underdose [Unknown]
  - Therapeutic product effect incomplete [Unknown]
